FAERS Safety Report 18544283 (Version 1)
Quarter: 2020Q4

REPORT INFORMATION
  Report Type: Other
  Country: ES (occurrence: ES)
  Receive Date: 20201125
  Receipt Date: 20201125
  Transmission Date: 20210114
  Serious: Yes (Hospitalization, Other)
  Sender: FDA-Public Use
  Company Number: ES-ROCHE-2311404

PATIENT
  Sex: Female

DRUGS (2)
  1. BEVACIZUMAB. [Suspect]
     Active Substance: BEVACIZUMAB
     Indication: HER2 NEGATIVE BREAST CANCER
     Route: 042
  2. DURVALUMAB. [Suspect]
     Active Substance: DURVALUMAB
     Indication: HER2 NEGATIVE BREAST CANCER
     Route: 042

REACTIONS (6)
  - Pneumonitis [Unknown]
  - Hypertension [Unknown]
  - Thrombosis [Unknown]
  - Respiratory failure [Unknown]
  - Bronchospasm [Unknown]
  - Pancreatitis [Unknown]
